FAERS Safety Report 10888604 (Version 2)
Quarter: 2015Q2

REPORT INFORMATION
  Report Type: Spontaneous
  Country: US (occurrence: US)
  Receive Date: 20150305
  Receipt Date: 20150406
  Transmission Date: 20150821
  Serious: Yes (Hospitalization, Other)
  Sender: FDA-Public Use
  Company Number: US-GLAXOSMITHKLINE-US2015GSK029492

PATIENT
  Age: 82 Year
  Sex: Female

DRUGS (1)
  1. ALKERAN [Suspect]
     Active Substance: MELPHALAN
     Indication: PLASMA CELL MYELOMA
     Dosage: 10 MG, CYC
     Dates: start: 20130418

REACTIONS (2)
  - Lung disorder [Unknown]
  - Asthma [Unknown]

NARRATIVE: CASE EVENT DATE: 20150221
